FAERS Safety Report 8876494 (Version 2)
Quarter: 2013Q2

REPORT INFORMATION
  Report Type: Spontaneous
  Country: US (occurrence: None)
  Receive Date: 20120426
  Receipt Date: 20120703
  Transmission Date: 20140414
  Serious: Yes (Other)
  Sender: FDA-Public Use
  Company Number: PHEH2012US004678

PATIENT
  Age: 34 Year
  Sex: Female
  Weight: 124.7 kg

DRUGS (2)
  1. GILENYA [Suspect]
     Indication: MULTIPLE SCLEROSIS
     Route: 048
     Dates: start: 201109, end: 201212
  2. CYMBALTA (DULOXETINE HYDROCHLORIDE) [Concomitant]

REACTIONS (2)
  - Rash generalised [None]
  - Hypersensitivity [None]
